FAERS Safety Report 9417092 (Version 4)
Quarter: 2013Q4

REPORT INFORMATION
  Report Type: Spontaneous
  Country: GB (occurrence: None)
  Receive Date: 20130722
  Receipt Date: 20131112
  Transmission Date: 20140711
  Serious: Yes (Hospitalization)
  Sender: FDA-Public Use
  Company Number: SYM-2013-06824

PATIENT
  Age: 68 Year
  Sex: Male

DRUGS (14)
  1. 5 FU [Suspect]
     Indication: COLORECTAL CANCER METASTATIC
     Route: 040
     Dates: start: 20130201, end: 20130201
  2. AFLIBERCEPT (AFLIBERCEPT) (SOLUTION FOR INFUSION) (AFLIBERCEPT) [Suspect]
     Indication: COLORECTAL CANCER METASTATIC
     Dosage: 368 MG, EVERY OTHER WEEK, INTRVENOUUS (NOT OTHERWISE SPECIFIED)
     Route: 042
     Dates: start: 20130201, end: 20130201
  3. IRINOTECAN (IRINOTECAN) (SOLUTION FOR INFUSION) (IRINOTECAN) [Suspect]
     Indication: COLORECTAL CANCER METASTATIC
     Dosage: 368 MG, EVERY OTHER WEEK, INTRAVENOUS (NOT OTHERWISE SPECIFIED)
     Route: 042
     Dates: start: 20130201, end: 20130201
  4. LEUCOVORIN (FOLINIC ACID) (SOLUTION FOR INFUSION) (FOLINIC ACID) [Suspect]
     Indication: COLORECTAL CANCER METASTATIC
     Dosage: 800 MG, EVERY OTHER WEEK, INTRAVANOUS (NOT OTHERWISE SPECIFIEF)
     Route: 042
     Dates: start: 20130201, end: 20130201
  5. CORTICOSTEROIDS (CORTICOSTEROIDS) [Concomitant]
  6. LANSOPROAZOLE (LANSOPRAZOLE) (LANSPROAZOLE) [Concomitant]
  7. SUCRALFATE (SUCRALFATE) (SUCRALFATE) [Concomitant]
  8. ANTIBIOTICS (ANTIBIOTICS) [Concomitant]
  9. SEROTONIN ANTAGONISTIS (SEROTONIN ANTAGONISTS) [Concomitant]
  10. ANGIOTENSIN II (ANTAGONISITS (ANGIOTENSIN II ANTAGONISITS, PLAIN) (NULL) [Concomitant]
  11. DIURETICS (DIURETI CS) [Concomitant]
  12. LOPERAMIDE (LOPERAMIDE) (LOPERAMIDE) [Concomitant]
  13. ANTIINFECTIVES (ANTIIENFECTIVES) [Concomitant]
  14. CODEINE PHOSPHATE (CODEINE PHOSPHATE) (COEDIENE PHOSPHATE) [Concomitant]

REACTIONS (6)
  - Diarrhoea [None]
  - Stomatitis [None]
  - Hypophagia [None]
  - Supraventricular tachycardia [None]
  - Stomatitis [None]
  - Neutropenic sepsis [None]
